FAERS Safety Report 9242444 (Version 1)
Quarter: 2013Q2

REPORT INFORMATION
  Report Type: Spontaneous
  Country: JP (occurrence: JP)
  Receive Date: 20130419
  Receipt Date: 20130419
  Transmission Date: 20140414
  Serious: Yes (Other)
  Sender: FDA-Public Use
  Company Number: JP-PFIZER INC-2013122080

PATIENT
  Age: 73 Year
  Sex: Male

DRUGS (6)
  1. CAMPTO [Suspect]
     Indication: COLON CANCER
     Dosage: ONCE A DAY
     Route: 041
  2. LEVOFOLINATE [Suspect]
     Indication: COLON CANCER
     Dosage: ONCE A DAY
     Route: 041
  3. ELPLAT [Suspect]
     Indication: COLON CANCER
     Dosage: ONCE A DAY
     Route: 041
  4. XELODA [Concomitant]
  5. 5-FU [Concomitant]
  6. AVASTIN [Concomitant]

REACTIONS (1)
  - Posterior reversible encephalopathy syndrome [Recovering/Resolving]
